FAERS Safety Report 20410259 (Version 1)
Quarter: 2022Q1

REPORT INFORMATION
  Report Type: Spontaneous
  Country: US (occurrence: None)
  Receive Date: 20220131
  Receipt Date: 20220131
  Transmission Date: 20220424
  Serious: Yes (Hospitalization)
  Sender: FDA-Public Use
  Company Number: None

PATIENT
  Age: 55 Year
  Sex: Female
  Weight: 61.65 kg

DRUGS (1)
  1. ADAKVEO [Suspect]
     Active Substance: CRIZANLIZUMAB-TMCA
     Indication: Sickle cell disease
     Route: 042
     Dates: start: 20220130, end: 20220130

REACTIONS (6)
  - Sensory disturbance [None]
  - Electric shock sensation [None]
  - Pain [None]
  - Genital pain [None]
  - Vision blurred [None]
  - Infusion related reaction [None]

NARRATIVE: CASE EVENT DATE: 20220130
